FAERS Safety Report 9805723 (Version 2)
Quarter: 2014Q1

REPORT INFORMATION
  Report Type: Spontaneous
  Country: FR (occurrence: FR)
  Receive Date: 20140109
  Receipt Date: 20140117
  Transmission Date: 20141002
  Serious: Yes (Hospitalization)
  Sender: FDA-Public Use
  Company Number: FR-MERCK-1401FRA001229

PATIENT
  Age: 51 Year
  Sex: Female

DRUGS (7)
  1. VIRAFERONPEG [Suspect]
     Dosage: 80 MICROGRAM, QW
     Route: 058
     Dates: start: 20131129, end: 20131213
  2. VIRAFERONPEG [Suspect]
     Dosage: 50 MICROGRAM, QD
     Route: 058
     Dates: start: 20131213, end: 20131220
  3. REBETOL [Suspect]
     Dosage: 400 MG, BID
     Route: 048
     Dates: start: 20131129, end: 20131224
  4. SUBOXONE [Concomitant]
     Dosage: 1 DF, QD
     Route: 060
     Dates: start: 20131105
  5. BUSPAR [Concomitant]
     Dosage: 3 DF, QD
     Route: 048
     Dates: start: 20131112
  6. NICOBION [Concomitant]
     Dosage: 1 DF, QD
     Route: 048
     Dates: start: 20131028
  7. ACETAMINOPHEN [Concomitant]
     Dosage: 1000 MG, QD
     Route: 048
     Dates: start: 20131129

REACTIONS (1)
  - Neutropenia [Unknown]
